FAERS Safety Report 14555069 (Version 1)
Quarter: 2018Q1

REPORT INFORMATION
  Report Type: Report from Study
  Country: TW (occurrence: TW)
  Receive Date: 20180220
  Receipt Date: 20180220
  Transmission Date: 20180509
  Serious: Yes (Hospitalization)
  Sender: FDA-Public Use
  Company Number: TW-ELI_LILLY_AND_COMPANY-TW201802004940

PATIENT
  Age: 85 Year
  Sex: Male

DRUGS (1)
  1. TERIPARATIDE [Suspect]
     Active Substance: TERIPARATIDE
     Indication: OSTEOPOROSIS
     Dosage: 20 UG, DAILY
     Route: 058
     Dates: start: 20171129

REACTIONS (2)
  - Hypotension [Unknown]
  - Dizziness [Unknown]
